FAERS Safety Report 25802653 (Version 1)
Quarter: 2025Q3

REPORT INFORMATION
  Report Type: Spontaneous
  Country: US (occurrence: None)
  Receive Date: 20250914
  Receipt Date: 20250914
  Transmission Date: 20251021
  Serious: Yes (Other)
  Sender: FDA-CTU
  Company Number: None

PATIENT
  Age: 53 Year
  Sex: Female

DRUGS (2)
  1. AVONEX [Suspect]
     Active Substance: INTERFERON BETA-1A
     Indication: Multiple sclerosis
     Dosage: 30MCG QW INTRAMUSCULAR
     Route: 030
  2. AMPYRA [Suspect]
     Active Substance: DALFAMPRIDINE

REACTIONS (2)
  - Seizure [None]
  - Therapy change [None]
